FAERS Safety Report 7096308-4 (Version None)
Quarter: 2010Q4

REPORT INFORMATION
  Report Type: 
  Country: None (occurrence: None)
  Receive Date: 20101111
  Receipt Date: 20080616
  Transmission Date: 20110411
  Serious: No
  Sender: FDA-Public Use
  Company Number: US-KINGPHARMUSA00001-K200800710

PATIENT
  Age: 10 Year
  Sex: Male

DRUGS (1)
  1. EPIPEN JR. [Suspect]
     Dosage: .15 MG, UNK
     Route: 030
     Dates: start: 20080530, end: 20080530

REACTIONS (4)
  - ACCIDENTAL EXPOSURE [None]
  - HYPOKINESIA [None]
  - PAIN [None]
  - PAIN IN EXTREMITY [None]
